FAERS Safety Report 18952686 (Version 2)
Quarter: 2021Q1

REPORT INFORMATION
  Report Type: Spontaneous
  Country: CN (occurrence: CN)
  Receive Date: 20210301
  Receipt Date: 20210327
  Transmission Date: 20210420
  Serious: Yes (Hospitalization, Other)
  Sender: FDA-Public Use
  Company Number: CN-JNJFOC-20210300079

PATIENT
  Age: 65 Year
  Sex: Male

DRUGS (2)
  1. RIVAROXABAN [Suspect]
     Active Substance: RIVAROXABAN
     Indication: ANTICOAGULANT THERAPY
     Dosage: 15 MG, BID
     Route: 048
     Dates: start: 20200519, end: 20200521
  2. RIVAROXABAN [Suspect]
     Active Substance: RIVAROXABAN
     Dosage: 10 MG, BID
     Route: 048
     Dates: start: 20200522, end: 20210201

REACTIONS (9)
  - Gastrointestinal haemorrhage [Recovering/Resolving]
  - Syncope [Unknown]
  - Product prescribing issue [Unknown]
  - Asthenia [Recovering/Resolving]
  - Faeces soft [Recovering/Resolving]
  - Incorrect product administration duration [Unknown]
  - Cold sweat [Unknown]
  - Haematuria [Recovered/Resolved]
  - Melaena [Recovering/Resolving]

NARRATIVE: CASE EVENT DATE: 20200519
